FAERS Safety Report 9347313 (Version 1)
Quarter: 2013Q2

REPORT INFORMATION
  Report Type: Report from Study
  Country: JP (occurrence: JP)
  Receive Date: 20130613
  Receipt Date: 20130613
  Transmission Date: 20140414
  Serious: Yes (Other)
  Sender: FDA-Public Use
  Company Number: JP-009507513-1305JPN006177

PATIENT
  Age: 38 Year
  Sex: Female

DRUGS (2)
  1. GANIREST SUBCUTANEOUS 0.25MG SYRINGE [Suspect]
     Dosage: 0.25 MG, QD
     Route: 058
     Dates: start: 20110408, end: 20110413
  2. FOLLISTIM [Suspect]
     Dosage: 150 IU, QD
     Route: 058

REACTIONS (1)
  - Abortion missed [Recovered/Resolved]
